FAERS Safety Report 7070310-0 (Version None)
Quarter: 2010Q4

REPORT INFORMATION
  Report Type: 
  Country: None (occurrence: None)
  Receive Date: 20101028
  Receipt Date: 20101001
  Transmission Date: 20110411
  Serious: No
  Sender: FDA-Public Use
  Company Number: US-WYE-H17968910

PATIENT
  Sex: Male
  Weight: 77.18 kg

DRUGS (7)
  1. PROTONIX [Suspect]
     Indication: GASTROOESOPHAGEAL REFLUX DISEASE
     Route: 048
     Dates: start: 20100928
  2. PLAVIX [Concomitant]
  3. MYLANTA [Concomitant]
  4. ZOCOR [Concomitant]
  5. FINASTERIDE [Concomitant]
  6. TIKOSYN [Concomitant]
  7. TOPROL-XL [Concomitant]

REACTIONS (2)
  - DRUG INEFFECTIVE [None]
  - INSOMNIA [None]
